FAERS Safety Report 15616056 (Version 1)
Quarter: 2018Q4

REPORT INFORMATION
  Report Type: Spontaneous
  Country: US (occurrence: US)
  Receive Date: 20181114
  Receipt Date: 20181114
  Transmission Date: 20190205
  Serious: Yes (Other)
  Sender: FDA-Public Use
  Company Number: US-TEVA-2018-US-974259

PATIENT
  Sex: Female

DRUGS (11)
  1. KETOCONAZOLE. [Suspect]
     Active Substance: KETOCONAZOLE
     Indication: PITUITARY TUMOUR BENIGN
     Route: 065
  2. CABERGOLINE. [Suspect]
     Active Substance: CABERGOLINE
     Indication: PITUITARY TUMOUR BENIGN
     Route: 065
  3. TEMOZOLOMIDE. [Suspect]
     Active Substance: TEMOZOLOMIDE
     Indication: PITUITARY TUMOUR BENIGN
     Dosage: 6 CYCLES
     Route: 065
  4. IPILIMUMAB [Suspect]
     Active Substance: IPILIMUMAB
     Indication: PITUITARY TUMOUR BENIGN
     Route: 050
  5. MIFEPRISTONE [Suspect]
     Active Substance: MIFEPRISTONE
     Indication: HYPERADRENOCORTICISM
     Route: 065
  6. METYRAPONE [Suspect]
     Active Substance: METYRAPONE
     Indication: HYPERADRENOCORTICISM
     Route: 065
  7. NIVOLUMAB [Suspect]
     Active Substance: NIVOLUMAB
     Indication: PITUITARY TUMOUR BENIGN
     Route: 050
  8. PASIREOTIDE. [Suspect]
     Active Substance: PASIREOTIDE
     Indication: PITUITARY TUMOUR BENIGN
     Route: 065
  9. CAPECITABINE. [Concomitant]
     Active Substance: CAPECITABINE
     Indication: PITUITARY TUMOUR BENIGN
     Dosage: 6 CYCLES
     Route: 065
  10. CARBOPLATIN. [Concomitant]
     Active Substance: CARBOPLATIN
     Indication: PITUITARY TUMOUR BENIGN
     Dosage: 2 CYCLES
     Route: 065
  11. ETOPOSIDE. [Concomitant]
     Active Substance: ETOPOSIDE
     Indication: PITUITARY TUMOUR BENIGN
     Dosage: 2 CYCLES
     Route: 065

REACTIONS (5)
  - Hypopituitarism [Unknown]
  - Drug ineffective [Unknown]
  - Hypophysitis [Unknown]
  - Tumour pseudoprogression [Recovering/Resolving]
  - Drug resistance [Unknown]
